FAERS Safety Report 8251479-9 (Version None)
Quarter: 2012Q2

REPORT INFORMATION
  Report Type: 
  Country: None (occurrence: None)
  Receive Date: 20120402
  Receipt Date: 20120323
  Transmission Date: 20120825
  Serious: Yes (Disabling, Other)
  Sender: FDA-Public Use
  Company Number: JP-CELGENEUS-087-21660-12033032

PATIENT
  Age: 70 Year
  Sex: Female

DRUGS (2)
  1. ABRAXANE [Suspect]
     Indication: BREAST CANCER
     Dosage: 300 MILLIGRAM
     Route: 065
     Dates: start: 20120316, end: 20120316
  2. MEDROXYPROGESTERONE ACETATE [Concomitant]
     Indication: BREAST CANCER
     Dosage: 400 MILLIGRAM
     Route: 048

REACTIONS (2)
  - ASTHENIA [None]
  - GAIT DISTURBANCE [None]
